FAERS Safety Report 21171097 (Version 1)
Quarter: 2022Q3

REPORT INFORMATION
  Report Type: Spontaneous
  Country: US (occurrence: None)
  Receive Date: 20220803
  Receipt Date: 20220803
  Transmission Date: 20221026
  Serious: No
  Sender: FDA-Public Use
  Company Number: None

PATIENT
  Age: 37 Year
  Sex: Female

DRUGS (1)
  1. ENBREL [Suspect]
     Active Substance: ETANERCEPT
     Dosage: 50MG OTHER SUBCUTANEOUS
     Route: 058
     Dates: start: 20220628, end: 20220711

REACTIONS (4)
  - Erythema [None]
  - Pain [None]
  - Burning sensation [None]
  - Therapy cessation [None]

NARRATIVE: CASE EVENT DATE: 20220711
